FAERS Safety Report 15962513 (Version 1)
Quarter: 2019Q1

REPORT INFORMATION
  Report Type: Spontaneous
  Country: AE (occurrence: AE)
  Receive Date: 20190214
  Receipt Date: 20190214
  Transmission Date: 20190417
  Serious: Yes (Other)
  Sender: FDA-Public Use
  Company Number: AE-GILEAD-2019-0389767

PATIENT
  Age: 47 Year
  Sex: Male

DRUGS (5)
  1. SOVALDI [Suspect]
     Active Substance: SOFOSBUVIR
     Indication: CHRONIC HEPATITIS C
     Dosage: 400 MG, QD
     Route: 065
  2. CYCLOSPORIN [Concomitant]
     Active Substance: CYCLOSPORINE
  3. MYCOPHENOLIC ACID. [Concomitant]
     Active Substance: MYCOPHENOLIC ACID
  4. PREDNISOLONE. [Concomitant]
     Active Substance: PREDNISOLONE
  5. DACLATASVIR. [Suspect]
     Active Substance: DACLATASVIR
     Indication: CHRONIC HEPATITIS C
     Dosage: 60 MG, QD
     Route: 065

REACTIONS (1)
  - Kidney transplant rejection [Unknown]
